FAERS Safety Report 4654441-8 (Version None)
Quarter: 2005Q2

REPORT INFORMATION
  Report Type: 
  Country: None (occurrence: None)
  Receive Date: 20050506
  Receipt Date: 20050427
  Transmission Date: 20051028
  Serious: Yes (Other)
  Sender: FDA-Public Use
  Company Number: ES-BOEHRINGER INGELHEIM PHARMACEUTICALS, INC.-2005-DE-01607GD

PATIENT

DRUGS (3)
  1. NEVIRAPINE [Suspect]
     Indication: HIV INFECTION
     Dosage: 400 MG (200 MG DURING THE FIRST 2 WEEKS IF THE SUBJECT WAS NOT RECEIVING NEVIRAPINE AT ENROLMENT)
  2. TENOFOVIR [Suspect]
     Indication: HIV INFECTION
  3. DIDANOSINE [Suspect]
     Indication: HIV INFECTION
     Dosage: 400 MG (250 MG WHEN BODY WEIGHT WAS {60 KG)

REACTIONS (1)
  - NEUROPATHY PERIPHERAL [None]
